FAERS Safety Report 6466223-5 (Version None)
Quarter: 2009Q4

REPORT INFORMATION
  Report Type: 
  Country: None (occurrence: None)
  Receive Date: 20091127
  Receipt Date: 20091116
  Transmission Date: 20100525
  Serious: Yes (Other)
  Sender: FDA-Public Use
  Company Number: 437307

PATIENT
  Age: 19 Year
  Sex: Male

DRUGS (1)
  1. LIDOCAINE 1.5% W/ EPINEPHRINE 1:200,000 [Suspect]
     Indication: EPIDURAL TEST DOSE
     Dosage: 3 ML, EPIDURAL
     Route: 008

REACTIONS (3)
  - HORNER'S SYNDROME [None]
  - NASAL CONGESTION [None]
  - SENSORY DISTURBANCE [None]
